FAERS Safety Report 4404253-5 (Version None)
Quarter: 2004Q3

REPORT INFORMATION
  Report Type: 
  Country: None (occurrence: None)
  Receive Date: 20040719
  Receipt Date: 20040702
  Transmission Date: 20050211
  Serious: Yes (Hospitalization)
  Sender: FDA-Public Use
  Company Number: T04-SWE-02787-01

PATIENT
  Age: 69 Year
  Sex: Male

DRUGS (8)
  1. CIPRALEX (ESCITALOPRAM) [Suspect]
     Indication: DEPRESSION
     Dosage: 10 MG QD PO
     Route: 048
     Dates: start: 20031222, end: 20040604
  2. CIPRALEX (ESCITALOPRAM) [Suspect]
     Indication: DEPRESSION
     Dosage: 5 MG BID PO
     Route: 048
     Dates: start: 20031219, end: 20031221
  3. ACTOS (PIOGLITAZONE) (PIOGLITAZONE) [Concomitant]
  4. NOVONORM (REPAGLINIDE) [Concomitant]
  5. ALLOPURINOL [Concomitant]
  6. RAMIPRIL [Concomitant]
  7. WARFARIN SODIUM [Concomitant]
  8. NORVASC [Concomitant]

REACTIONS (2)
  - DRUG ABUSER [None]
  - GRAND MAL CONVULSION [None]
